FAERS Safety Report 10007290 (Version 1)
Quarter: 2014Q1

REPORT INFORMATION
  Report Type: Spontaneous
  Country: US (occurrence: None)
  Receive Date: 20140312
  Receipt Date: 20140312
  Transmission Date: 20141002
  Serious: Yes (Other)
  Sender: FDA-Public Use
  Company Number: None

PATIENT
  Sex: Female

DRUGS (1)
  1. AFINITOR 5MG NOVARTIS [Suspect]
     Indication: BREAST CANCER
     Route: 048
     Dates: start: 201401, end: 201402

REACTIONS (3)
  - Drug ineffective [None]
  - Breast cancer [None]
  - Malignant neoplasm progression [None]
